FAERS Safety Report 6121055-2 (Version None)
Quarter: 2009Q1

REPORT INFORMATION
  Report Type: 
  Country: None (occurrence: None)
  Receive Date: 20090317
  Receipt Date: 20090130
  Transmission Date: 20090719
  Serious: Yes (Death)
  Sender: FDA-Public Use
  Company Number: US-TYCO HEALTHCARE/MALLINCKRODT-T200900409

PATIENT
  Age: 53 Year
  Sex: Male

DRUGS (2)
  1. MORPHINE SULFATE [Suspect]
     Route: 065
  2. TRAMADOL HCL [Suspect]
     Route: 065

REACTIONS (1)
  - CARDIO-RESPIRATORY ARREST [None]
